FAERS Safety Report 8349112-0 (Version None)
Quarter: 2012Q2

REPORT INFORMATION
  Report Type: 
  Country: None (occurrence: None)
  Receive Date: 20120508
  Receipt Date: 20120427
  Transmission Date: 20120825
  Serious: Yes (Other)
  Sender: FDA-Public Use
  Company Number: 1273287

PATIENT
  Age: 72 Year
  Sex: Male

DRUGS (4)
  1. DACARBAZINE [Suspect]
     Indication: HODGKIN'S DISEASE
     Dosage: FIRST CYCLE OF ABVD REGIME
     Dates: start: 20120323
  2. ADRIAMYCIN PFS [Concomitant]
  3. (BLEOMYCIN) [Concomitant]
  4. VINBLASTINE SULFATE [Concomitant]

REACTIONS (2)
  - CHILLS [None]
  - STRIDOR [None]
